FAERS Safety Report 12497819 (Version 1)
Quarter: 2016Q2

REPORT INFORMATION
  Report Type: Report from Study
  Country: US (occurrence: US)
  Receive Date: 20160625
  Receipt Date: 20160625
  Transmission Date: 20160815
  Serious: Yes (Hospitalization)
  Sender: FDA-Public Use
  Company Number: US-GILEAD-2016-0219507

PATIENT
  Age: 74 Year
  Sex: Female

DRUGS (1)
  1. AZTREONAM LYSINE [Suspect]
     Active Substance: AZTREONAM LYSINE
     Indication: PNEUMONIA PSEUDOMONAL
     Dosage: 75 MG, UNK
     Route: 055
     Dates: start: 20150512

REACTIONS (1)
  - Post procedural complication [Unknown]
